FAERS Safety Report 23800456 (Version 1)
Quarter: 2024Q2

REPORT INFORMATION
  Report Type: Spontaneous
  Country: US (occurrence: US)
  Receive Date: 20240430
  Receipt Date: 20240430
  Transmission Date: 20240716
  Serious: Yes (Other)
  Sender: FDA-Public Use
  Company Number: US-AMERICAN REGENT INC-2024001543

PATIENT
  Age: 34 Year
  Sex: Female

DRUGS (2)
  1. PROGESTERONE [Suspect]
     Active Substance: PROGESTERONE
     Indication: Hormone therapy
     Dosage: UNK FOR 10 WEEKS
  2. ESTROGENS [Suspect]
     Active Substance: ESTROGENS
     Indication: Hormone therapy
     Dosage: UNK FOR 10 WEEKS

REACTIONS (2)
  - Phyllodes tumour [Recovered/Resolved]
  - Product use in unapproved indication [Recovered/Resolved]
